FAERS Safety Report 9254105 (Version 1)
Quarter: 2013Q2

REPORT INFORMATION
  Report Type: Spontaneous
  Country: US (occurrence: None)
  Receive Date: 20130422
  Receipt Date: 20130422
  Transmission Date: 20140414
  Serious: Yes (Hospitalization)
  Sender: FDA-Public Use
  Company Number: None

PATIENT
  Age: 87 Year
  Sex: Male
  Weight: 103 kg

DRUGS (2)
  1. PREDNISONE [Suspect]
     Indication: GOUT
     Route: 048
     Dates: start: 20130123, end: 20130126
  2. ASPIRIN [Suspect]
     Indication: ATRIAL FIBRILLATION
     Route: 048
     Dates: start: 20080312

REACTIONS (6)
  - Gastritis [None]
  - Duodenitis [None]
  - Dizziness [None]
  - Gastric haemorrhage [None]
  - Vomiting [None]
  - Haemoglobin decreased [None]
